FAERS Safety Report 25958240 (Version 1)
Quarter: 2025Q4

REPORT INFORMATION
  Report Type: Spontaneous
  Country: EU (occurrence: EU)
  Receive Date: 20251024
  Receipt Date: 20251024
  Transmission Date: 20260118
  Serious: Yes (Death, Other)
  Sender: MYLAN
  Company Number: None

PATIENT
  Age: 17 Year
  Sex: Female

DRUGS (3)
  1. ACETAMINOPHEN [Suspect]
     Active Substance: ACETAMINOPHEN
     Indication: Product used for unknown indication
     Dosage: UNK
  2. ACUPAN [Suspect]
     Active Substance: NEFOPAM HYDROCHLORIDE
     Indication: Product used for unknown indication
     Dosage: UNK
  3. FLURBIPROFEN [Suspect]
     Active Substance: FLURBIPROFEN
     Indication: Product used for unknown indication
     Dosage: UNK

REACTIONS (10)
  - Toxicity to various agents [Fatal]
  - Coma [Fatal]
  - Respiratory distress [Fatal]
  - Tachycardia [Fatal]
  - Hypotension [Fatal]
  - Cardiogenic shock [Fatal]
  - Hepatic cytolysis [Fatal]
  - Intracranial pressure increased [Fatal]
  - Multiple organ dysfunction syndrome [Fatal]
  - Acute kidney injury [Recovering/Resolving]

NARRATIVE: CASE EVENT DATE: 20250925
